FAERS Safety Report 16640372 (Version 2)
Quarter: 2019Q3

REPORT INFORMATION
  Report Type: Report from Study
  Country: None (occurrence: CL)
  Receive Date: 20190728
  Receipt Date: 20190731
  Transmission Date: 20191004
  Serious: Yes (Other)
  Sender: FDA-Public Use
  Company Number: CL-ABBVIE-19K-034-2865742-00

PATIENT
  Age: 18 Year
  Sex: Female

DRUGS (1)
  1. HUMIRA [Suspect]
     Active Substance: ADALIMUMAB
     Indication: JUVENILE IDIOPATHIC ARTHRITIS
     Route: 058
     Dates: start: 20180328, end: 201810

REACTIONS (7)
  - Depression [Unknown]
  - Joint injury [Unknown]
  - Meniscus injury [Recovering/Resolving]
  - Arthralgia [Unknown]
  - Intentional product misuse [Unknown]
  - Fall [Unknown]
  - Ligament rupture [Recovering/Resolving]

NARRATIVE: CASE EVENT DATE: 201810
